FAERS Safety Report 24773072 (Version 1)
Quarter: 2024Q4

REPORT INFORMATION
  Report Type: Spontaneous
  Country: US (occurrence: None)
  Receive Date: 20241225
  Receipt Date: 20241225
  Transmission Date: 20250115
  Serious: No
  Sender: ENCUBE ETHICALS
  Company Number: US-Encube-001505

PATIENT
  Age: 63 Year
  Sex: Female

DRUGS (1)
  1. CICLOPIROX [Suspect]
     Active Substance: CICLOPIROX
     Indication: Product used for unknown indication
     Dosage: SOLUTION

REACTIONS (4)
  - Scratch [Recovered/Resolved]
  - Product container issue [Unknown]
  - Product physical consistency issue [Unknown]
  - Product packaging difficult to open [Unknown]

NARRATIVE: CASE EVENT DATE: 20241213
